FAERS Safety Report 21282774 (Version 2)
Quarter: 2022Q3

REPORT INFORMATION
  Report Type: Spontaneous
  Country: JP (occurrence: JP)
  Receive Date: 20220901
  Receipt Date: 20220913
  Transmission Date: 20221026
  Serious: Yes (Other)
  Sender: FDA-Public Use
  Company Number: JP-GUERBET-JP-20220116

PATIENT
  Age: 84 Year
  Sex: Female

DRUGS (2)
  1. LIPIODOL [Suspect]
     Active Substance: ETHIODIZED OIL
     Indication: Therapeutic embolisation
     Dosage: 1 ML OF MIXTURE OF LIPIODOL AND NBCA  AT A RATIO OF 1:2
     Route: 013
  2. ENBUCRILATE [Suspect]
     Active Substance: ENBUCRILATE
     Indication: Therapeutic embolisation
     Dosage: 1 ML OF MIXTURE OF LIPIODOL AND NBCA  AT A RATIO OF 1:2
     Route: 013

REACTIONS (2)
  - Gastrointestinal necrosis [Unknown]
  - Product use in unapproved indication [Unknown]
